FAERS Safety Report 9060373 (Version 1)
Quarter: 2013Q1

REPORT INFORMATION
  Report Type: Spontaneous
  Country: CO (occurrence: CO)
  Receive Date: 20130212
  Receipt Date: 20130212
  Transmission Date: 20140127
  Serious: Yes (Hospitalization)
  Sender: FDA-Public Use
  Company Number: CO-ASTRAZENECA-2013SE09257

PATIENT
  Age: 4 Month
  Sex: Male
  Weight: 4 kg

DRUGS (1)
  1. SYNAGIS [Suspect]
     Indication: HEART DISEASE CONGENITAL
     Route: 030
     Dates: start: 20121029

REACTIONS (2)
  - Aspiration [Unknown]
  - Atelectasis [Unknown]
